FAERS Safety Report 8716849 (Version 2)
Quarter: 2012Q4

REPORT INFORMATION
  Report Type: 
  Country: US (occurrence: US)
  Receive Date: 20120810
  Receipt Date: 20121012
  Transmission Date: 20130627
  Serious: Yes (Other)
  Sender: FDA-Public Use
  Company Number: US-BAYER-2012-078699

PATIENT
  Age: 25 Year
  Sex: Female
  Weight: 59.77 kg

DRUGS (4)
  1. YAZ [Suspect]
  2. YASMIN [Suspect]
  3. PERCOCET [Concomitant]
     Dosage: 2.5-325 mg tablet every six hours
     Dates: start: 20111011
  4. TYLENOL [Concomitant]
     Indication: HEADACHE
     Dosage: 500 mg, UNK

REACTIONS (1)
  - Transient ischaemic attack [None]
